FAERS Safety Report 9587799 (Version 9)
Quarter: 2013Q4

REPORT INFORMATION
  Report Type: Spontaneous
  Country: CA (occurrence: CA)
  Receive Date: 20131003
  Receipt Date: 20131206
  Transmission Date: 20140711
  Serious: Yes (Other)
  Sender: FDA-Public Use
  Company Number: CA-ROCHE-1283553

PATIENT
  Age: 29 Year
  Sex: Female

DRUGS (3)
  1. XOLAIR [Suspect]
     Indication: ASTHMA
     Dosage: VIAL.
     Route: 058
     Dates: start: 20100302
  2. XOLAIR [Suspect]
     Indication: CHRONIC SPONTANEOUS URTICARIA
     Route: 058
     Dates: start: 20131003
  3. ADVIL [Suspect]
     Indication: HEADACHE
     Route: 065

REACTIONS (8)
  - Urticaria [Recovering/Resolving]
  - Nasopharyngitis [Unknown]
  - Pain [Recovering/Resolving]
  - Off label use [Unknown]
  - Swelling face [Unknown]
  - Headache [Unknown]
  - Drug ineffective [Unknown]
  - Quality of life decreased [Unknown]
